FAERS Safety Report 8251616-6 (Version None)
Quarter: 2012Q2

REPORT INFORMATION
  Report Type: 
  Country: None (occurrence: None)
  Receive Date: 20120402
  Receipt Date: 20111206
  Transmission Date: 20120825
  Serious: No
  Sender: FDA-Public Use
  Company Number: US-ABBOTT-11P-163-0881419-00

PATIENT
  Sex: Male
  Weight: 86.26 kg

DRUGS (2)
  1. ANDROGEL [Suspect]
     Indication: BLOOD TESTOSTERONE DECREASED
     Dates: start: 20111001
  2. LANTUS [Concomitant]
     Indication: DIABETES MELLITUS

REACTIONS (2)
  - TESTICULAR PAIN [None]
  - TESTICULAR SWELLING [None]
